FAERS Safety Report 10574194 (Version 1)
Quarter: 2014Q4

REPORT INFORMATION
  Report Type: Spontaneous
  Country: US (occurrence: US)
  Receive Date: 20141110
  Receipt Date: 20141110
  Transmission Date: 20150529
  Serious: No
  Sender: FDA-Public Use
  Company Number: US-009507513-1409USA002071

PATIENT
  Sex: Female

DRUGS (1)
  1. DR. SCHOLL^S INGROWN TOENAIL PAIN RELIEVER [Suspect]
     Active Substance: SODIUM SULFIDE
     Indication: ONYCHALGIA
     Dosage: UNK, UNKNOWN
     Route: 061

REACTIONS (2)
  - Infection [Not Recovered/Not Resolved]
  - Drug ineffective [Unknown]
